FAERS Safety Report 6411510-X (Version None)
Quarter: 2009Q4

REPORT INFORMATION
  Report Type: 
  Country: None (occurrence: None)
  Receive Date: 20091023
  Receipt Date: 20091016
  Transmission Date: 20100525
  Serious: Yes (Hospitalization)
  Sender: FDA-Public Use
  Company Number: US-ELI_LILLY_AND_COMPANY-US200910004206

PATIENT
  Sex: Male

DRUGS (22)
  1. HUMALOG MIX 75/25 [Suspect]
     Dosage: 40 U, EACH MORNING
     Dates: start: 20080401
  2. HUMALOG MIX 75/25 [Suspect]
     Dosage: 30 U, EACH EVENING
     Dates: start: 20080401
  3. HUMALOG MIX 75/25 [Suspect]
  4. CYMBALTA [Suspect]
     Dosage: 60 MG, 2/D
  5. HYDROCORTISON [Concomitant]
     Dosage: 200 MG, 2/D
  6. POTASSIUM CHLORIDE [Concomitant]
     Dosage: 8 MEQ, 2/D
  7. COREG [Concomitant]
     Dosage: 25 MG, 2/D
  8. PLAVIX [Concomitant]
     Dosage: 75 MG, UNK
  9. LOTREL [Concomitant]
     Dosage: UNK, 2/D
  10. CLONIDINE [Concomitant]
     Dosage: 0.2 MG, 3/D
  11. SYNTHROID [Concomitant]
     Dosage: 125 UG, UNK
  12. ENBREL [Concomitant]
     Dosage: 50 MG, WEEKLY (1/W)
  13. ETODOLAC [Concomitant]
     Dosage: 500 MG, 2/D
  14. METFORMIN HCL [Concomitant]
     Dosage: 1000 MG, 2/D
  15. CARDURA [Concomitant]
     Dosage: 4 MG, UNK
  16. LYRICA [Concomitant]
     Dosage: 200 MG, 3/D
  17. BENAZEPRIL HYDROCHLORIDE [Concomitant]
     Dosage: 40 MG, EACH EVENING
  18. ZETIA [Concomitant]
     Dosage: 10 MG, UNK
  19. NEXIUM [Concomitant]
     Dosage: 40 MG, UNK
  20. VICODIN ES [Concomitant]
     Dosage: UNK, AS NEEDED
  21. OXYGEN [Concomitant]
  22. CHLORDIAZEPOXIDE [Concomitant]
     Dosage: 10 MG, 4/D

REACTIONS (4)
  - BLOOD GLUCOSE INCREASED [None]
  - CORONARY ARTERIAL STENT INSERTION [None]
  - DRUG INEFFECTIVE [None]
  - SPINAL FRACTURE [None]
